FAERS Safety Report 4540102-2 (Version None)
Quarter: 2004Q4

REPORT INFORMATION
  Report Type: 
  Country: None (occurrence: None)
  Receive Date: 20041223
  Receipt Date: 20041105
  Transmission Date: 20050328
  Serious: No
  Sender: FDA-Public Use
  Company Number: US-JNJFOC-20041102298

PATIENT
  Age: 19 Year
  Sex: Female
  Weight: 45.3597 kg

DRUGS (3)
  1. ORTHO EVRA [Suspect]
     Indication: OVARIAN CYST
     Dosage: 1 DOSE(S), 7 IN 6 WEEK, TRANSDERMAL
     Route: 062
     Dates: start: 20040901
  2. MINOCYCLINE HCL [Concomitant]
  3. EFFEXOR [Concomitant]

REACTIONS (1)
  - WITHDRAWAL BLEED [None]
